FAERS Safety Report 16047824 (Version 2)
Quarter: 2019Q1

REPORT INFORMATION
  Report Type: Report from Study
  Country: US (occurrence: US)
  Receive Date: 20190307
  Receipt Date: 20190321
  Transmission Date: 20190418
  Serious: Yes (Death, Hospitalization, Other)
  Sender: FDA-Public Use
  Company Number: US-BRISTOL-MYERS SQUIBB COMPANY-BMS-2019-022687

PATIENT
  Age: 75 Year
  Sex: Male
  Weight: 65.4 kg

DRUGS (8)
  1. OXYCONTIN [Concomitant]
     Active Substance: OXYCODONE HYDROCHLORIDE
     Indication: PRODUCT USED FOR UNKNOWN INDICATION
     Route: 065
  2. LOVENOX [Concomitant]
     Active Substance: ENOXAPARIN SODIUM
     Indication: PRODUCT USED FOR UNKNOWN INDICATION
     Route: 065
  3. CABOZANTINIB [Suspect]
     Active Substance: CABOZANTINIB
     Indication: RENAL CANCER
     Dosage: 20 MG, UNK
     Route: 048
     Dates: start: 20181114, end: 20190121
  4. LEVOTHYROXINE. [Concomitant]
     Active Substance: LEVOTHYROXINE
     Indication: PRODUCT USED FOR UNKNOWN INDICATION
     Route: 065
  5. OXYCODONE [Concomitant]
     Active Substance: OXYCODONE
     Indication: PRODUCT USED FOR UNKNOWN INDICATION
     Route: 065
  6. NIVOLUMAB [Suspect]
     Active Substance: NIVOLUMAB
     Indication: RENAL CANCER
     Dosage: 196 MG, UNK
     Route: 042
     Dates: start: 20181114, end: 20190122
  7. DRONABINOL. [Concomitant]
     Active Substance: DRONABINOL
     Indication: PRODUCT USED FOR UNKNOWN INDICATION
     Route: 065
  8. MIRTAZAPINE. [Concomitant]
     Active Substance: MIRTAZAPINE
     Indication: PRODUCT USED FOR UNKNOWN INDICATION
     Route: 065

REACTIONS (4)
  - Cerebrovascular accident [Unknown]
  - Malignant neoplasm progression [Fatal]
  - Hypotension [Unknown]
  - Dehydration [Unknown]

NARRATIVE: CASE EVENT DATE: 20190123
